FAERS Safety Report 4970859-8 (Version None)
Quarter: 2006Q2

REPORT INFORMATION
  Report Type: 
  Country: None (occurrence: None)
  Receive Date: 20060406
  Receipt Date: 20060330
  Transmission Date: 20061013
  Serious: Yes (Other)
  Sender: FDA-Public Use
  Company Number: 13214

PATIENT
  Age: 9 Year
  Sex: Female

DRUGS (4)
  1. METHOTREXATE [Suspect]
     Indication: JUVENILE ARTHRITIS
     Dosage: 1 TABLET (S) WEEKLY PO
     Route: 048
  2. METHOTREXATE [Suspect]
     Indication: JUVENILE ARTHRITIS
     Dosage: 1 WEEKLY SC
     Route: 058
  3. INDOMETHACIN [Concomitant]
  4. PREDNISONE [Concomitant]

REACTIONS (3)
  - BALANCE DISORDER [None]
  - CONVULSION [None]
  - HEMIPARESIS [None]
